FAERS Safety Report 4884588-2 (Version None)
Quarter: 2005Q4

REPORT INFORMATION
  Report Type: 
  Country: None (occurrence: None)
  Receive Date: 20051201
  Receipt Date: 20050826
  Transmission Date: 20060501
  Serious: No
  Sender: FDA-Public Use
  Company Number: 2005PV001584

PATIENT
  Age: 57 Year
  Sex: Female
  Weight: 137.6667 kg

DRUGS (16)
  1. BYETTA [Suspect]
     Indication: DIABETES MELLITUS NON-INSULIN-DEPENDENT
     Dosage: 5 MCG; BID; SC
     Route: 058
     Dates: start: 20050705, end: 20050721
  2. AMARYL [Concomitant]
  3. EFFEXOR [Concomitant]
  4. CELEXA [Concomitant]
  5. TRILEPTAL [Concomitant]
  6. TAMOXIFEN CITRATE [Concomitant]
  7. KLONOPIN [Concomitant]
  8. ASPIRIN [Concomitant]
  9. DETROL LA [Concomitant]
  10. CELEBREX [Concomitant]
  11. PROTONIX [Concomitant]
  12. LIPITOR [Concomitant]
  13. ALTACE [Concomitant]
  14. MULTIVITAMIN [Concomitant]
  15. FISH OIL [Concomitant]
  16. CALCIUM WITH VITAMIN D [Concomitant]

REACTIONS (3)
  - BIPOLAR DISORDER [None]
  - CONDITION AGGRAVATED [None]
  - DEPRESSION [None]
